FAERS Safety Report 7242351-1 (Version None)
Quarter: 2011Q1

REPORT INFORMATION
  Report Type: 
  Country: None (occurrence: None)
  Receive Date: 20110125
  Receipt Date: 20081111
  Transmission Date: 20110831
  Serious: No
  Sender: FDA-Public Use
  Company Number: 2008BI030346

PATIENT
  Age: 58 Year
  Sex: Female

DRUGS (2)
  1. TYSABRI [Suspect]
     Indication: MULTIPLE SCLEROSIS
     Route: 042
     Dates: start: 20080529, end: 20091224
  2. TYSABRI [Suspect]
     Route: 042
     Dates: start: 20100611

REACTIONS (11)
  - BLOOD GLUCOSE INCREASED [None]
  - HERPES VIRUS INFECTION [None]
  - BLOOD PRESSURE DECREASED [None]
  - HYPOTENSION [None]
  - CHILLS [None]
  - FATIGUE [None]
  - FEELING ABNORMAL [None]
  - TREMOR [None]
  - URINARY TRACT INFECTION [None]
  - DIZZINESS [None]
  - HEADACHE [None]
